FAERS Safety Report 7535833-6 (Version None)
Quarter: 2011Q2

REPORT INFORMATION
  Report Type: 
  Country: None (occurrence: None)
  Receive Date: 20110609
  Receipt Date: 20110520
  Transmission Date: 20111010
  Serious: Yes (Other)
  Sender: FDA-Public Use
  Company Number: US-BAYER-201024986NA

PATIENT
  Age: 29 Year
  Sex: Female
  Weight: 86.168 kg

DRUGS (1)
  1. YAZ [Suspect]
     Indication: CONTRACEPTION
     Dosage: UNK UNK, QD
     Route: 048
     Dates: start: 20071001, end: 20080801

REACTIONS (5)
  - FLUID RETENTION [None]
  - BILIARY DYSKINESIA [None]
  - DIARRHOEA [None]
  - ABDOMINAL PAIN [None]
  - CHOLECYSTITIS CHRONIC [None]
